FAERS Safety Report 5094854-6 (Version None)
Quarter: 2006Q3

REPORT INFORMATION
  Report Type: 
  Country: None (occurrence: None)
  Receive Date: 20060901
  Receipt Date: 20060825
  Transmission Date: 20061208
  Serious: Yes (Other)
  Sender: FDA-Public Use
  Company Number: US-BRISTOL-MYERS SQUIBB COMPANY-13489182

PATIENT
  Age: 53 Year
  Sex: Male

DRUGS (4)
  1. ERBITUX [Suspect]
     Indication: TONGUE NEOPLASM MALIGNANT STAGE UNSPECIFIED
     Dosage: THE PATIENT RECEIVED CETUXIMAB ON 5/11/06, 5/18/06,5/26/06
     Dates: start: 20060511, end: 20060511
  2. ERBITUX [Suspect]
     Indication: LARYNGEAL CANCER
     Dosage: THE PATIENT RECEIVED CETUXIMAB ON 5/11/06, 5/18/06,5/26/06
     Dates: start: 20060511, end: 20060511
  3. CISPLATIN [Concomitant]
     Dates: start: 20060511, end: 20060511
  4. RADIATION THERAPY [Concomitant]

REACTIONS (1)
  - THROMBOEMBOLIC STROKE [None]
